FAERS Safety Report 7285174-X (Version None)
Quarter: 2011Q1

REPORT INFORMATION
  Report Type: 
  Country: None (occurrence: None)
  Receive Date: 20110210
  Receipt Date: 20110131
  Transmission Date: 20110831
  Serious: Yes (Other)
  Sender: FDA-Public Use
  Company Number: DE-MPIJNJ-2011-00464

PATIENT

DRUGS (4)
  1. DEXAMETHASONE [Concomitant]
     Dosage: UNK
     Dates: start: 20090501, end: 20091001
  2. DEXAMETHASONE [Concomitant]
     Dosage: 40 UNK, UNK
     Dates: start: 20101101
  3. VELCADE [Suspect]
     Indication: PLASMACYTOMA
     Dosage: UNK
     Route: 042
     Dates: start: 20090501, end: 20091001
  4. VELCADE [Suspect]
     Dosage: UNK
     Route: 042
     Dates: start: 20101101

REACTIONS (11)
  - PULMONARY HYPERTENSION [None]
  - CARDIAC DISORDER [None]
  - RIGHT VENTRICULAR FAILURE [None]
  - COUGH [None]
  - DEEP VEIN THROMBOSIS [None]
  - PNEUMOCYSTIS JIROVECI INFECTION [None]
  - PNEUMONITIS [None]
  - TACHYCARDIA [None]
  - GASTROINTESTINAL DISORDER [None]
  - POLYNEUROPATHY [None]
  - ORTHOPNOEA [None]
